FAERS Safety Report 7099133-3 (Version None)
Quarter: 2010Q4

REPORT INFORMATION
  Report Type: 
  Country: None (occurrence: None)
  Receive Date: 20101112
  Receipt Date: 20101105
  Transmission Date: 20110411
  Serious: Yes (Other)
  Sender: FDA-Public Use
  Company Number: B0683713A

PATIENT
  Age: 17 Year
  Sex: Female
  Weight: 26 kg

DRUGS (8)
  1. CELSENTRI [Suspect]
     Indication: HIV INFECTION
     Dosage: 1200MG PER DAY
     Route: 065
  2. RALTEGRAVIR [Suspect]
     Indication: HIV INFECTION
     Dosage: 800MG PER DAY
     Route: 065
  3. CEFUROXIME [Concomitant]
     Dosage: 250MG TWICE PER DAY
  4. TRIMETHOPRIM + SULFAMETHOXAZOLE [Concomitant]
     Dosage: 500MG THREE TIMES PER WEEK
     Route: 048
  5. MYCOSTATIN [Concomitant]
     Route: 061
  6. SALBUTAMOL [Concomitant]
  7. ETRAVIRINE [Concomitant]
     Indication: HIV INFECTION
     Dosage: 125MG TWICE PER DAY
  8. ANTIRETROVIRAL MEDICATIONS [Concomitant]

REACTIONS (3)
  - GASTROINTESTINAL DISORDER [None]
  - HALLUCINATION [None]
  - OFF LABEL USE [None]
